FAERS Safety Report 6860498-6 (Version None)
Quarter: 2010Q3

REPORT INFORMATION
  Report Type: 
  Country: None (occurrence: None)
  Receive Date: 20100720
  Receipt Date: 20100719
  Transmission Date: 20110219
  Serious: Yes (Hospitalization)
  Sender: FDA-Public Use
  Company Number: A0869481A

PATIENT
  Sex: Male

DRUGS (2)
  1. AVANDIA [Suspect]
     Route: 048
     Dates: start: 19990101, end: 20041231
  2. ASPIRIN [Concomitant]

REACTIONS (3)
  - CARDIAC OPERATION [None]
  - CORONARY ARTERY DISEASE [None]
  - SILENT MYOCARDIAL INFARCTION [None]
